FAERS Safety Report 16611093 (Version 1)
Quarter: 2019Q3

REPORT INFORMATION
  Report Type: Spontaneous
  Country: US (occurrence: US)
  Receive Date: 20190722
  Receipt Date: 20190722
  Transmission Date: 20191004
  Serious: No
  Sender: FDA-Public Use
  Company Number: US-SA-2019SA192099

PATIENT
  Sex: Male
  Weight: 133.81 kg

DRUGS (19)
  1. BENEFIBER [Concomitant]
     Active Substance: STARCH, WHEAT
  2. LIDOCAINE. [Concomitant]
     Active Substance: LIDOCAINE
  3. AZELASTINE. [Concomitant]
     Active Substance: AZELASTINE HYDROCHLORIDE
  4. KEYTRUDA [Concomitant]
     Active Substance: PEMBROLIZUMAB
  5. LOSARTAN POTASSIUM. [Concomitant]
     Active Substance: LOSARTAN POTASSIUM
  6. XARELTO [Concomitant]
     Active Substance: RIVAROXABAN
  7. PANTOPRAZOLE [Concomitant]
     Active Substance: PANTOPRAZOLE
  8. TAMSULOSIN [Concomitant]
     Active Substance: TAMSULOSIN
  9. PRALUENT [Suspect]
     Active Substance: ALIROCUMAB
     Indication: TYPE IIA HYPERLIPIDAEMIA
     Dosage: 75 MG, QOW
     Route: 058
     Dates: start: 20190301
  10. DIPHENHYDRAMINE. [Concomitant]
     Active Substance: DIPHENHYDRAMINE
  11. FLUTICASONE PROPIONATE. [Concomitant]
     Active Substance: FLUTICASONE PROPIONATE
  12. KETOCONAZOLE. [Concomitant]
     Active Substance: KETOCONAZOLE
  13. VITAMIN D3 [Concomitant]
     Active Substance: CHOLECALCIFEROL
  14. CLONIDINE. [Concomitant]
     Active Substance: CLONIDINE
  15. FUROSEMIDE. [Concomitant]
     Active Substance: FUROSEMIDE
  16. ASPIRIN [ACETYLSALICYLIC ACID] [Concomitant]
     Active Substance: ASPIRIN
  17. LEVOCETIRIZINE DIHYDROCHLORIDE. [Concomitant]
     Active Substance: LEVOCETIRIZINE DIHYDROCHLORIDE
  18. CHLORTHALIDONE. [Concomitant]
     Active Substance: CHLORTHALIDONE
  19. POTASSIUM CHLORIDE. [Concomitant]
     Active Substance: POTASSIUM CHLORIDE

REACTIONS (3)
  - Bursitis [Unknown]
  - Insomnia [Unknown]
  - Constipation [Unknown]

NARRATIVE: CASE EVENT DATE: 2019
